FAERS Safety Report 8525771-4 (Version None)
Quarter: 2012Q3

REPORT INFORMATION
  Report Type: 
  Country: None (occurrence: None)
  Receive Date: 20120720
  Receipt Date: 20120711
  Transmission Date: 20120928
  Serious: Yes (Hospitalization, Disabling, Other)
  Sender: FDA-Public Use
  Company Number: US-009507513-1202USA01126

PATIENT

DRUGS (17)
  1. FOSAMAX PLUS D [Suspect]
     Dosage: UNK UNK, QW
     Route: 048
     Dates: start: 20080604
  2. FOSAMAX PLUS D [Suspect]
     Indication: OSTEOPOROSIS
     Dosage: UNK MG, QW
     Dates: start: 20060112
  3. BONIVA [Suspect]
     Indication: OSTEOPOROSIS
     Dosage: 150 MG, UNK
     Route: 048
     Dates: start: 20080404
  4. FOSAMAX PLUS D [Suspect]
     Dosage: UNK UNK, QW
     Route: 048
     Dates: start: 20100812
  5. BONIVA [Suspect]
     Dosage: 150 MG, UNK
     Route: 048
     Dates: start: 20090427
  6. BONIVA [Suspect]
     Dosage: 150 MG, UNK
     Route: 048
     Dates: start: 20101014, end: 20101229
  7. ACTONEL [Suspect]
     Dates: start: 20100701
  8. THERAPY UNSPECIFIED [Concomitant]
     Indication: HYPERTENSION
  9. FOSAMAX PLUS D [Suspect]
     Dosage: UNK UNK, QW
     Route: 048
     Dates: start: 20060216, end: 20060721
  10. FOSAMAX PLUS D [Suspect]
     Dosage: UNK UNK, QW
     Route: 048
     Dates: start: 20090610, end: 20100425
  11. BONIVA [Suspect]
     Dosage: 150 MG, UNK
     Route: 048
     Dates: start: 20110202
  12. FOSAMAX [Suspect]
     Dosage: 70 MG, QW
     Route: 048
     Dates: start: 20050119
  13. FOSAMAX PLUS D [Suspect]
     Dosage: UNK MG, QW
     Dates: start: 20061002, end: 20080306
  14. FOSAMAX [Suspect]
     Indication: OSTEOPENIA
     Dosage: UNK
     Route: 048
     Dates: start: 19950101, end: 20110210
  15. FOSAMAX PLUS D [Suspect]
     Dosage: UNK MG, QW
     Dates: start: 20060818
  16. FOSAMAX PLUS D [Suspect]
     Dosage: UNK UNK, QW
     Route: 048
     Dates: start: 20060914
  17. ACTONEL [Suspect]
     Indication: OSTEOPOROSIS
     Dosage: 150 MG, UNK
     Route: 048
     Dates: start: 20100505, end: 20100706

REACTIONS (64)
  - OSTEOARTHRITIS [None]
  - MENISCUS LESION [None]
  - RENAL FAILURE CHRONIC [None]
  - COUGH [None]
  - FIBROMYALGIA [None]
  - CARDIAC MURMUR [None]
  - HYPERKERATOSIS [None]
  - CHEST PAIN [None]
  - GAIT DISTURBANCE [None]
  - LYMPHADENITIS [None]
  - RASH [None]
  - LOW TURNOVER OSTEOPATHY [None]
  - RESPIRATORY TRACT CONGESTION [None]
  - BURSITIS [None]
  - JOINT INJURY [None]
  - CARDIOMEGALY [None]
  - MUSCULOSKELETAL PAIN [None]
  - OEDEMA PERIPHERAL [None]
  - CARDIAC ARREST [None]
  - HYPERSENSITIVITY [None]
  - ANGINA PECTORIS [None]
  - PERIPHERAL VASCULAR DISORDER [None]
  - DIVERTICULUM [None]
  - ELECTROCARDIOGRAM CHANGE [None]
  - BRONCHITIS [None]
  - CARDIAC DISORDER [None]
  - DYSLIPIDAEMIA [None]
  - OSTEOARTHROPATHY [None]
  - COLITIS [None]
  - PHARYNGITIS STREPTOCOCCAL [None]
  - FATIGUE [None]
  - BACK PAIN [None]
  - ARTHROPOD BITE [None]
  - COMPRESSION FRACTURE [None]
  - ELECTROCARDIOGRAM ST SEGMENT DEPRESSION [None]
  - BREAST CYST [None]
  - HYPOAESTHESIA [None]
  - GASTROOESOPHAGEAL REFLUX DISEASE [None]
  - PAIN IN EXTREMITY [None]
  - NERVOUSNESS [None]
  - LIGAMENT SPRAIN [None]
  - PULMONARY GRANULOMA [None]
  - DYSPNOEA [None]
  - DIVERTICULITIS [None]
  - LIMB INJURY [None]
  - VISION BLURRED [None]
  - DIARRHOEA HAEMORRHAGIC [None]
  - KIDNEY INFECTION [None]
  - ASTHENIA [None]
  - TREMOR [None]
  - SINUSITIS [None]
  - BLOOD CHOLESTEROL INCREASED [None]
  - GASTROINTESTINAL DISORDER [None]
  - FOOD POISONING [None]
  - FALL [None]
  - ROTATOR CUFF SYNDROME [None]
  - HAEMORRHOIDS [None]
  - URINARY TRACT INFECTION [None]
  - HAEMATURIA [None]
  - ARTHRALGIA [None]
  - FEMUR FRACTURE [None]
  - CATARACT [None]
  - HYPERCHOLESTEROLAEMIA [None]
  - HYPERTENSION [None]
